FAERS Safety Report 19308688 (Version 2)
Quarter: 2021Q2

REPORT INFORMATION
  Report Type: Report from Study
  Country: US (occurrence: US)
  Receive Date: 20210525
  Receipt Date: 20210624
  Transmission Date: 20210717
  Serious: Yes (Death, Other)
  Sender: FDA-Public Use
  Company Number: US-GILEAD-2021-0532518

PATIENT
  Age: 67 Year
  Sex: Male

DRUGS (4)
  1. PROZAC [Concomitant]
     Active Substance: FLUOXETINE HYDROCHLORIDE
  2. VALTREX [Concomitant]
     Active Substance: VALACYCLOVIR HYDROCHLORIDE
  3. IDELALISIB [Suspect]
     Active Substance: IDELALISIB
     Indication: DIFFUSE LARGE B-CELL LYMPHOMA
     Dosage: UNK
     Route: 065
     Dates: start: 20191223, end: 20200205
  4. DAPSONE. [Concomitant]
     Active Substance: DAPSONE

REACTIONS (2)
  - Graft versus host disease in liver [Fatal]
  - Graft versus host disease in gastrointestinal tract [Fatal]

NARRATIVE: CASE EVENT DATE: 20200201
